FAERS Safety Report 17173761 (Version 2)
Quarter: 2020Q1

REPORT INFORMATION
  Report Type: Spontaneous
  Country: US (occurrence: US)
  Receive Date: 20191219
  Receipt Date: 20200204
  Transmission Date: 20200409
  Serious: No
  Sender: FDA-Public Use
  Company Number: US-PFIZER INC-2019468707

PATIENT
  Age: 14 Year
  Sex: Male

DRUGS (1)
  1. GENOTROPIN [Suspect]
     Active Substance: SOMATROPIN
     Indication: GROWTH DISORDER
     Dosage: UNK (SHE THINKS 2.4 MG ONCE AT NIGHTCARTRIDGE IS MARKED 12 MG,)

REACTIONS (4)
  - Device issue [Unknown]
  - Arthralgia [Unknown]
  - Growing pains [Unknown]
  - Device difficult to use [Unknown]
